FAERS Safety Report 9867716 (Version 1)
Quarter: 2014Q1

REPORT INFORMATION
  Report Type: Spontaneous
  Country: US (occurrence: US)
  Receive Date: 20140204
  Receipt Date: 20140204
  Transmission Date: 20141002
  Serious: Yes (Other)
  Sender: FDA-Public Use
  Company Number: US-B.I. PHARMACEUTICALS,INC./RIDGEFIELD-2014-BI-03817BP

PATIENT
  Sex: Female
  Weight: 60 kg

DRUGS (1)
  1. MICARDIS HCT TABLETS [Suspect]
     Indication: HYPERTENSION
     Route: 048
     Dates: start: 2008

REACTIONS (2)
  - Macular degeneration [Not Recovered/Not Resolved]
  - Arthritis [Not Recovered/Not Resolved]
